FAERS Safety Report 4369043-0 (Version None)
Quarter: 2004Q2

REPORT INFORMATION
  Report Type: 
  Country: None (occurrence: None)
  Receive Date: 20040527
  Receipt Date: 20040518
  Transmission Date: 20050107
  Serious: Yes (Hospitalization, Other)
  Sender: FDA-Public Use
  Company Number: 2004017484

PATIENT
  Age: 54 Year
  Sex: Male

DRUGS (11)
  1. DILANTIN [Suspect]
     Indication: CONVULSION
     Dosage: 600 MG (300 MG, 2 IN 1 D), ORAL
     Route: 048
     Dates: start: 20040226, end: 20040311
  2. DILANTIN [Suspect]
     Indication: HYPONATRAEMIA
     Dosage: 600 MG (300 MG, 2 IN 1 D), ORAL
     Route: 048
     Dates: start: 20040226, end: 20040311
  3. THIAMINE (THIAMINE) [Concomitant]
  4. METOPROLOL (METOPROLOL) [Concomitant]
  5. QUETIAPINE FUMARATE (QUETIAPINE FUMARATE) [Concomitant]
  6. MULTIVITAMINS, COMBINATIONS (MULTIVITAMINS, COMBINATIONS) [Concomitant]
  7. DOCUSATE SODIUM (DOCUSATE SODIUM) [Concomitant]
  8. LAXATIVES (LAXATIVES) [Concomitant]
  9. FOLIC ACID [Concomitant]
  10. LORAZEPAM [Concomitant]
  11. ACETAMINOPHEN [Concomitant]

REACTIONS (3)
  - ALANINE AMINOTRANSFERASE INCREASED [None]
  - ASPARTATE AMINOTRANSFERASE INCREASED [None]
  - BLOOD ALKALINE PHOSPHATASE INCREASED [None]
